FAERS Safety Report 7793491-X (Version None)
Quarter: 2011Q4

REPORT INFORMATION
  Report Type: 
  Country: None (occurrence: None)
  Receive Date: 20111003
  Receipt Date: 20110922
  Transmission Date: 20120403
  Serious: Yes (Hospitalization, Other)
  Sender: FDA-Public Use
  Company Number: US-BAYER-2011-013033

PATIENT
  Age: 16 Year
  Sex: Female
  Weight: 107.3 kg

DRUGS (6)
  1. YAZ [Suspect]
     Indication: ORAL CONTRACEPTION
     Dosage: UNK
     Route: 048
     Dates: start: 20080901, end: 20090411
  2. SPIRONOLACTONE [Concomitant]
  3. NORVASC [Concomitant]
  4. TOPAMAX [Concomitant]
     Dosage: UNK
     Dates: start: 20090301, end: 20090701
  5. ABILIFY [Concomitant]
  6. AMLODIPINE [Concomitant]
     Dosage: UNK
     Dates: start: 20090319

REACTIONS (7)
  - ANXIETY [None]
  - INJURY [None]
  - CEREBROVASCULAR ACCIDENT [None]
  - EMOTIONAL DISTRESS [None]
  - INTRACRANIAL VENOUS SINUS THROMBOSIS [None]
  - FEAR [None]
  - PAIN [None]
